FAERS Safety Report 9462944 (Version 1)
Quarter: 2013Q3

REPORT INFORMATION
  Report Type: Spontaneous
  Country: US (occurrence: US)
  Receive Date: 20130816
  Receipt Date: 20130816
  Transmission Date: 20140515
  Serious: Yes (Other)
  Sender: FDA-Public Use
  Company Number: US-TARO-2013P1017307

PATIENT
  Age: 41 Year
  Sex: Female
  Weight: 82.56 kg

DRUGS (4)
  1. LAMOTRIGINE TABLETS 100 MG [Suspect]
     Indication: BIPOLAR DISORDER
     Route: 048
     Dates: start: 20130726, end: 201307
  2. LAMOTRIGINE TABLETS 100 MG [Suspect]
     Indication: BIPOLAR DISORDER
     Route: 048
     Dates: start: 201307, end: 20130802
  3. LAMOTRIGINE XR 100 MG TABLETS (PAR) [Suspect]
     Indication: BIPOLAR DISORDER
     Route: 048
     Dates: start: 20130803
  4. LAMOTRIGINE XR 25 MG TABLETS (PAR) [Suspect]
     Indication: BIPOLAR DISORDER
     Route: 048
     Dates: start: 20130803

REACTIONS (19)
  - Product substitution issue [Not Recovered/Not Resolved]
  - Dizziness [Not Recovered/Not Resolved]
  - Disturbance in attention [Not Recovered/Not Resolved]
  - Vision blurred [Unknown]
  - Discomfort [Unknown]
  - Headache [Recovered/Resolved]
  - Insomnia [Recovering/Resolving]
  - Restlessness [Recovered/Resolved]
  - Fatigue [Unknown]
  - Amnesia [Unknown]
  - Movement disorder [Unknown]
  - Abnormal dreams [Unknown]
  - Nightmare [Unknown]
  - Suicidal ideation [Recovered/Resolved]
  - Affect lability [Recovering/Resolving]
  - Drug ineffective [Not Recovered/Not Resolved]
  - Major depression [Not Recovered/Not Resolved]
  - Nausea [Not Recovered/Not Resolved]
  - Anxiety [Not Recovered/Not Resolved]
